FAERS Safety Report 5351055-1 (Version None)
Quarter: 2007Q2

REPORT INFORMATION
  Report Type: 
  Country: None (occurrence: None)
  Receive Date: 20070608
  Receipt Date: 20070529
  Transmission Date: 20071010
  Serious: Yes (Death)
  Sender: FDA-Public Use
  Company Number: US-PFIZER INC-2005126004

PATIENT
  Sex: Male
  Weight: 63.5 kg

DRUGS (9)
  1. NEURONTIN [Suspect]
     Indication: RESTLESS LEGS SYNDROME
     Dosage: DAILY DOSE:100MG
     Route: 048
  2. NEURONTIN [Suspect]
     Indication: PAIN
  3. NEURONTIN [Suspect]
     Indication: PARAESTHESIA
  4. TRAZODONE HCL [Concomitant]
     Route: 065
  5. SERZONE [Concomitant]
     Route: 065
  6. VIAGRA [Concomitant]
     Route: 065
  7. PAXIL [Concomitant]
     Route: 065
  8. CLONAZEPAM [Concomitant]
     Route: 065
  9. LEXAPRO [Concomitant]
     Route: 065

REACTIONS (2)
  - COMPLETED SUICIDE [None]
  - DRUG INEFFECTIVE [None]
